FAERS Safety Report 11319063 (Version 1)
Quarter: 2015Q3

REPORT INFORMATION
  Report Type: Spontaneous
  Country: US (occurrence: None)
  Receive Date: 20150727
  Receipt Date: 20150727
  Transmission Date: 20151125
  Serious: No
  Sender: FDA-Public Use
  Company Number: None

PATIENT
  Age: 34 Year
  Sex: Female
  Weight: 127.01 kg

DRUGS (7)
  1. LOVENOX [Concomitant]
     Active Substance: ENOXAPARIN SODIUM
  2. LORAZAPAM [Concomitant]
     Active Substance: LORAZEPAM
  3. AMOX/K CLAV [Suspect]
     Active Substance: AMOXICILLIN\CLAVULANATE POTASSIUM
     Indication: BARTHOLINITIS
     Dosage: 875MGS 2 PILLS 2 TIMES A DA, TWICE DAILY
     Dates: start: 20150717, end: 20150722
  4. MORPHINE [Concomitant]
     Active Substance: MORPHINE
  5. FLEXERAL [Concomitant]
  6. TRAZODONE [Concomitant]
     Active Substance: TRAZODONE HYDROCHLORIDE
  7. PROAIR INHALER [Concomitant]

REACTIONS (7)
  - Pruritus [None]
  - Vulvovaginal dryness [None]
  - Skin exfoliation [None]
  - Diarrhoea [None]
  - Skin irritation [None]
  - Erythema [None]
  - Rash [None]

NARRATIVE: CASE EVENT DATE: 20150717
